FAERS Safety Report 17147492 (Version 4)
Quarter: 2020Q1

REPORT INFORMATION
  Report Type: Report from Study
  Country: US (occurrence: US)
  Receive Date: 20191212
  Receipt Date: 20200125
  Transmission Date: 20200409
  Serious: Yes (Hospitalization)
  Sender: FDA-Public Use
  Company Number: US-ROCHE-2491756

PATIENT
  Age: 82 Year
  Sex: Male
  Weight: 75.36 kg

DRUGS (2)
  1. VITAMIN C [Concomitant]
     Active Substance: ASCORBIC ACID
     Route: 048
  2. OCREVUS [Suspect]
     Active Substance: OCRELIZUMAB
     Indication: RELAPSING-REMITTING MULTIPLE SCLEROSIS
     Dosage: DATE OF TREATMENT: 28/JUN/2019
     Route: 042
     Dates: start: 2017, end: 201902

REACTIONS (4)
  - Urinary tract infection [Recovered/Resolved]
  - Oxygen saturation decreased [Recovered/Resolved]
  - Sepsis [Recovered/Resolved]
  - Malaise [Unknown]

NARRATIVE: CASE EVENT DATE: 201911
